FAERS Safety Report 13530718 (Version 1)
Quarter: 2017Q2

REPORT INFORMATION
  Report Type: Spontaneous
  Country: KZ (occurrence: KZ)
  Receive Date: 20170510
  Receipt Date: 20170510
  Transmission Date: 20170830
  Serious: Yes (Other)
  Sender: FDA-Public Use
  Company Number: KZ-JNJFOC-20170430525

PATIENT
  Age: 30 Year
  Sex: Male

DRUGS (1)
  1. LISTERINE COOL MINT ANTISEPTIC [Suspect]
     Active Substance: EUCALYPTOL\MENTHOL\METHYL SALICYLATE\THYMOL
     Indication: THERAPEUTIC PROCEDURE
     Route: 048
     Dates: start: 20170205, end: 20170207

REACTIONS (2)
  - Burn oral cavity [Unknown]
  - Oral pain [Unknown]

NARRATIVE: CASE EVENT DATE: 20170205
